FAERS Safety Report 5288374-3 (Version None)
Quarter: 2007Q1

REPORT INFORMATION
  Report Type: 
  Country: None (occurrence: None)
  Receive Date: 20070116
  Receipt Date: 20060410
  Transmission Date: 20070707
  Serious: Yes (Life-Threatening)
  Sender: FDA-Public Use
  Company Number: FEI2006-0505

PATIENT
  Age: 35 Year
  Sex: Female
  Weight: 74.2085 kg

DRUGS (2)
  1. INTRAUTERINE COPPER CONTRACEPTIVE [Suspect]
     Indication: CONTRACEPTION
     Dosage: INTRA-UTERINE
     Route: 015
     Dates: start: 20030731
  2. HYDROXYZINE HCL (HYDROXYZINE HYDROCHLORIDE) [Concomitant]

REACTIONS (1)
  - ECTOPIC PREGNANCY [None]
